FAERS Safety Report 8876481 (Version 2)
Quarter: 2013Q2

REPORT INFORMATION
  Report Type: Spontaneous
  Country: US (occurrence: None)
  Receive Date: 20120426
  Receipt Date: 20121031
  Transmission Date: 20140414
  Serious: Yes (Other)
  Sender: FDA-Public Use
  Company Number: PHEH2012US004667

PATIENT
  Age: 52 Year
  Sex: Female
  Weight: 68 kg

DRUGS (1)
  1. GILENYA [Suspect]
     Indication: MULTIPLE SCLEROSIS
     Route: 048
     Dates: start: 20120221

REACTIONS (8)
  - Nervousness [None]
  - Blood pressure increased [None]
  - Chest pain [None]
  - Gastrooesophageal reflux disease [None]
  - Anxiety [None]
  - Diarrhoea [None]
  - Dyspnoea [None]
  - Headache [None]
